FAERS Safety Report 6327529-3 (Version None)
Quarter: 2009Q3

REPORT INFORMATION
  Report Type: 
  Country: None (occurrence: None)
  Receive Date: 20090825
  Receipt Date: 20090818
  Transmission Date: 20100115
  Serious: Yes (Other)
  Sender: FDA-Public Use
  Company Number: PHHY2008JP33228

PATIENT
  Age: 32 Year
  Sex: Male

DRUGS (24)
  1. SIMULECT [Suspect]
     Indication: RENAL TRANSPLANT
     Dosage: 20 MG/DAY
     Route: 042
  2. NEORAL [Suspect]
     Indication: RENAL TRANSPLANT
     Dosage: 275 MG/DAY
  3. NEORAL [Suspect]
     Dosage: 550 MG/DAY
  4. NEORAL [Suspect]
     Dosage: 600 MG/DAY
  5. NEORAL [Suspect]
     Dosage: 400 MG/DAY
  6. NEORAL [Suspect]
     Dosage: 250 MG/DAY
  7. NEORAL [Suspect]
     Dosage: 300 MG/DAY
  8. NEORAL [Suspect]
     Dosage: 200 MG/DAY
  9. NEORAL [Suspect]
     Dosage: 175 MG/DAY
  10. NEORAL [Suspect]
     Dosage: 150 MG/DAY
  11. MIZORIBINE [Suspect]
     Indication: RENAL TRANSPLANT
     Dosage: 225 MG/DAY
  12. MIZORIBINE [Suspect]
     Dosage: 450 MG/DAY
  13. MIZORIBINE [Suspect]
     Dosage: 200 MG/DAY
  14. MIZORIBINE [Suspect]
     Dosage: 100 MG/DAY
  15. MIZORIBINE [Suspect]
     Dosage: 100 MG/DAY
  16. MIZORIBINE [Suspect]
     Dosage: 200 MG/DAY
  17. MIZORIBINE [Suspect]
     Dosage: 2 MG/KG/DAY
  18. MIZORIBINE [Suspect]
     Dosage: 4 MG/KG/DAY
  19. METHYLPREDNISOLONE [Suspect]
     Indication: RENAL TRANSPLANT
     Dosage: 500 MG/DAY
  20. METHYLPREDNISOLONE [Suspect]
     Dosage: 20 MG/DAY
  21. METHYLPREDNISOLONE [Suspect]
     Dosage: 16 MG/DAY
  22. METHYLPREDNISOLONE [Suspect]
     Dosage: 12 MG/DAY
  23. METHYLPREDNISOLONE [Suspect]
     Dosage: 4 MG/DAY
  24. MYCOPHENOLATE MOFETIL [Suspect]
     Indication: RENAL TRANSPLANT
     Dosage: 750 MG/DAY
     Route: 048

REACTIONS (6)
  - BIOPSY KIDNEY ABNORMAL [None]
  - BK VIRUS INFECTION [None]
  - BLOOD CREATININE INCREASED [None]
  - JC VIRUS INFECTION [None]
  - RENAL TUBULAR ATROPHY [None]
  - URINE ANALYSIS ABNORMAL [None]
